FAERS Safety Report 10360683 (Version 2)
Quarter: 2014Q3

REPORT INFORMATION
  Report Type: Spontaneous
  Country: US (occurrence: None)
  Receive Date: 20140731
  Receipt Date: 20140826
  Transmission Date: 20150326
  Serious: Yes (Death, Other)
  Sender: FDA-Public Use
  Company Number: 2014-US-009253

PATIENT
  Age: 79 Year
  Sex: Male

DRUGS (7)
  1. ACCUPRIL [Concomitant]
     Active Substance: QUINAPRIL HYDROCHLORIDE
  2. XYREM [Suspect]
     Active Substance: SODIUM OXYBATE
     Indication: PRODUCT USED FOR UNKNOWN INDICATION
     Route: 048
     Dates: start: 200302, end: 200303
  3. K-DUR [Concomitant]
     Active Substance: POTASSIUM CHLORIDE
  4. FLOMAX [Concomitant]
     Active Substance: TAMSULOSIN HYDROCHLORIDE
  5. ASPIRIN (ACETYLSALICYLIC ACID) [Concomitant]
     Active Substance: ASPIRIN
  6. PROZAC [Concomitant]
     Active Substance: FLUOXETINE HYDROCHLORIDE
  7. ZOCOR [Concomitant]
     Active Substance: SIMVASTATIN

REACTIONS (8)
  - Bronchiolitis [None]
  - Death [None]
  - Diabetes mellitus [None]
  - Narcolepsy [None]
  - Cataplexy [None]
  - Sleep apnoea syndrome [None]
  - Malignant melanoma [None]
  - Mycobacterium avium complex infection [None]

NARRATIVE: CASE EVENT DATE: 20140723
